FAERS Safety Report 22632932 (Version 2)
Quarter: 2023Q2

REPORT INFORMATION
  Report Type: Other
  Country: PK (occurrence: None)
  Receive Date: 20230623
  Receipt Date: 20230627
  Transmission Date: 20230722
  Serious: Yes (Death)
  Sender: FDA-Public Use
  Company Number: PK-ROCHE-3374058

PATIENT
  Age: 73 Year
  Sex: Male

DRUGS (1)
  1. MABTHERA [Suspect]
     Active Substance: RITUXIMAB
     Indication: Diffuse large B-cell lymphoma
     Dosage: INFORMATION RELATED TO FREQUENCY AND BATCH NUMBER WAS NOT AVAILABLE
     Route: 058
     Dates: start: 20230414

REACTIONS (1)
  - Neoplasm malignant [Fatal]
